FAERS Safety Report 5726615-6 (Version None)
Quarter: 2008Q2

REPORT INFORMATION
  Report Type: 
  Country: None (occurrence: None)
  Receive Date: 20080502
  Receipt Date: 20080429
  Transmission Date: 20081010
  Serious: Yes (Life-Threatening, Hospitalization)
  Sender: FDA-Public Use
  Company Number: PA-JNJFOC-20080407687

PATIENT
  Age: 47 Year
  Sex: Female

DRUGS (3)
  1. ELEQUINE [Suspect]
     Indication: PREMEDICATION
     Route: 042
  2. FENTANEST [Concomitant]
     Indication: ANAESTHESIA
     Route: 042
  3. DIPRIVAN [Concomitant]
     Indication: ANAESTHESIA
     Route: 042

REACTIONS (4)
  - DYSPNOEA [None]
  - HYPERTENSION [None]
  - LOCALISED OEDEMA [None]
  - RASH GENERALISED [None]
